FAERS Safety Report 6647529-3 (Version None)
Quarter: 2010Q1

REPORT INFORMATION
  Report Type: 
  Country: None (occurrence: None)
  Receive Date: 20100323
  Receipt Date: 20100323
  Transmission Date: 20100710
  Serious: No
  Sender: FDA-Public Use
  Company Number: None

PATIENT
  Age: 76 Year
  Sex: Male
  Weight: 65.45 kg

DRUGS (1)
  1. ACETYLCYSTEINE [Suspect]
     Dosage: 5 ML TID INHALE
     Route: 055
     Dates: start: 20090312, end: 20090312

REACTIONS (2)
  - ANXIETY [None]
  - BRONCHOSPASM [None]
